FAERS Safety Report 8653460 (Version 3)
Quarter: 2012Q4

REPORT INFORMATION
  Report Type: 
  Country: IT (occurrence: IT)
  Receive Date: 20120706
  Receipt Date: 20121008
  Transmission Date: 20130627
  Serious: Yes (Other)
  Sender: FDA-Public Use
  Company Number: IT-GILEAD-2012-0057423

PATIENT
  Age: 55 Year
  Sex: Male

DRUGS (8)
  1. TRUVADA [Suspect]
     Indication: HIV INFECTION
     Dosage: 445 mg, QD
     Route: 048
     Dates: start: 20101021, end: 20120618
  2. TRUVADA [Suspect]
     Dosage: 445 UNK, UNK
     Route: 048
     Dates: start: 20120619
  3. VIRAMUNE [Suspect]
     Indication: ANTIRETROVIRAL THERAPY
     Dosage: 400 mg, QD
     Route: 048
     Dates: start: 20101021, end: 20120618
  4. GABAPENTIN [Concomitant]
     Dosage: UNK
     Route: 048
     Dates: start: 20101006
  5. XATRAL [Concomitant]
     Dosage: UNK
     Route: 048
     Dates: start: 20101006
  6. ARCOXIA [Concomitant]
     Dosage: UNK, prn
     Route: 048
  7. LAROXYL [Concomitant]
     Dosage: UNK
     Route: 048
     Dates: start: 20101006
  8. ENTUMIN [Concomitant]
     Dosage: UNK
     Route: 048
     Dates: start: 20101006

REACTIONS (2)
  - Hallucination [Recovered/Resolved]
  - Somnolence [Recovered/Resolved]
